FAERS Safety Report 17884999 (Version 1)
Quarter: 2020Q2

REPORT INFORMATION
  Report Type: Report from Study
  Country: JP (occurrence: JP)
  Receive Date: 20200611
  Receipt Date: 20200611
  Transmission Date: 20200714
  Serious: Yes (Hospitalization, Other)
  Sender: FDA-Public Use
  Company Number: JP-BIOGEN-2017BI00354262

PATIENT
  Age: 13 Year
  Sex: Male

DRUGS (8)
  1. EFTRENONACOG ALFA [Suspect]
     Active Substance: EFTRENONACOG ALFA
     Dosage: 2000 IU, 1X
     Route: 042
     Dates: start: 20161116, end: 20161116
  2. EFTRENONACOG ALFA [Suspect]
     Active Substance: EFTRENONACOG ALFA
     Dosage: 2000 IU, 1X
     Route: 042
     Dates: start: 20161116, end: 20161116
  3. EFTRENONACOG ALFA [Suspect]
     Active Substance: EFTRENONACOG ALFA
     Dosage: 2000 IU
     Route: 042
     Dates: start: 20180910, end: 20180911
  4. EFTRENONACOG ALFA [Suspect]
     Active Substance: EFTRENONACOG ALFA
     Dosage: 2000 IU
     Route: 042
     Dates: start: 20181006, end: 20181009
  5. EFTRENONACOG ALFA [Suspect]
     Active Substance: EFTRENONACOG ALFA
     Dosage: 2000 IU
     Route: 042
     Dates: start: 20180910, end: 20180911
  6. EFTRENONACOG ALFA [Suspect]
     Active Substance: EFTRENONACOG ALFA
     Indication: FACTOR IX DEFICIENCY
     Dosage: 2000 IU, QW
     Route: 042
     Dates: start: 20151026, end: 20190308
  7. EFTRENONACOG ALFA [Suspect]
     Active Substance: EFTRENONACOG ALFA
     Dosage: 2000 IU
     Route: 042
     Dates: start: 20181006, end: 20181009
  8. EFTRENONACOG ALFA [Suspect]
     Active Substance: EFTRENONACOG ALFA
     Indication: FACTOR IX DEFICIENCY
     Dosage: 2000 IU, QW
     Route: 042
     Dates: start: 20151026, end: 20190308

REACTIONS (3)
  - Haemarthrosis [Recovered/Resolved]
  - Muscle haemorrhage [Recovered/Resolved]
  - Muscle haemorrhage [Recovered/Resolved]

NARRATIVE: CASE EVENT DATE: 20161115
